FAERS Safety Report 6762571-X (Version None)
Quarter: 2010Q2

REPORT INFORMATION
  Report Type: 
  Country: None (occurrence: None)
  Receive Date: 20100609
  Receipt Date: 20100528
  Transmission Date: 20101027
  Serious: Yes (Other)
  Sender: FDA-Public Use
  Company Number: JP-PFIZER INC-2010067741

PATIENT
  Age: 59 Year
  Sex: Female

DRUGS (3)
  1. SUTENT [Suspect]
     Route: 048
  2. DASEN [Concomitant]
     Route: 048
  3. MUCOSOLVAN [Concomitant]
     Route: 048

REACTIONS (1)
  - DIPLOPIA [None]
